FAERS Safety Report 9186068 (Version 1)
Quarter: 2013Q1

REPORT INFORMATION
  Report Type: Spontaneous
  Country: US (occurrence: US)
  Receive Date: 20130325
  Receipt Date: 20130325
  Transmission Date: 20140127
  Serious: No
  Sender: FDA-Public Use
  Company Number: US-009507513-1303USA007659

PATIENT
  Age: 16 Year
  Sex: Female

DRUGS (11)
  1. TEMOZOLOMIDE [Suspect]
     Indication: NEOPLASM
     Dosage: 160 MG/M2, CYCLICAL
     Dates: start: 20100425
  2. TEMOZOLOMIDE [Suspect]
     Dosage: UNK
     Dates: start: 201005
  3. DOXORUBICIN [Suspect]
     Indication: NEOPLASM
     Dosage: UNK
     Dates: start: 201005
  4. CISPLATIN [Suspect]
     Indication: NEOPLASM
     Dosage: 20 MG/M2, CYCLICAL
     Dates: start: 20100425
  5. IFOSFAMIDE [Suspect]
     Indication: NEOPLASM
     Dosage: 1.5 MG/M2, CYCLICAL
     Dates: start: 20100425, end: 201005
  6. VINCRISTINE SULFATE [Suspect]
     Indication: NEOPLASM
     Dosage: 1.5 MG/M2, CYCLICAL
     Dates: start: 20100425
  7. VINCRISTINE SULFATE [Suspect]
     Dosage: UNK
     Dates: start: 201005
  8. CYCLOPHOSPHAMIDE [Suspect]
     Indication: NEOPLASM
     Dosage: UNK
     Dates: start: 201005
  9. IRINOTECAN HYDROCHLORIDE [Suspect]
     Indication: NEOPLASM
  10. GEMCITABINE [Suspect]
     Indication: NEOPLASM
     Dosage: UNK
     Dates: start: 201005
  11. DOCETAXEL [Suspect]
     Indication: NEOPLASM
     Dosage: UNK
     Dates: start: 201005

REACTIONS (2)
  - Nail discolouration [Recovering/Resolving]
  - Tongue pigmentation [Recovering/Resolving]
